FAERS Safety Report 15578606 (Version 2)
Quarter: 2019Q1

REPORT INFORMATION
  Report Type: Spontaneous
  Country: US (occurrence: US)
  Receive Date: 20181102
  Receipt Date: 20190112
  Transmission Date: 20190417
  Serious: Yes (Hospitalization, Disabling, Other)
  Sender: FDA-Public Use
  Company Number: PHHY2018US138882

PATIENT
  Age: 45 Year
  Sex: Male

DRUGS (1)
  1. MOXIFLOXACIN. [Suspect]
     Active Substance: MOXIFLOXACIN
     Indication: ENDOPHTHALMITIS
     Dosage: (0.5 MG/0.1 ML)
     Route: 065

REACTIONS (6)
  - Iris transillumination defect [Recovered/Resolved]
  - Eye pain [Recovered/Resolved]
  - Visual impairment [Recovered/Resolved]
  - Iris hyperpigmentation [Recovered/Resolved]
  - Intraocular pressure increased [Recovered/Resolved]
  - Product use in unapproved indication [Unknown]
